FAERS Safety Report 25998596 (Version 1)
Quarter: 2025Q4

REPORT INFORMATION
  Report Type: Report from Study
  Country: US (occurrence: US)
  Receive Date: 20251105
  Receipt Date: 20251105
  Transmission Date: 20260118
  Serious: Yes (Other)
  Sender: ALEXION PHARMACEUTICALS
  Company Number: US-AstraZeneca-CH-00984667A

PATIENT
  Age: 71 Year
  Sex: Female
  Weight: 49.887 kg

DRUGS (1)
  1. ACALABRUTINIB [Suspect]
     Active Substance: ACALABRUTINIB
     Indication: Chronic lymphocytic leukaemia
     Dosage: 100 MILLIGRAM, BID
     Dates: start: 20241121

REACTIONS (1)
  - Coeliac disease [Recovering/Resolving]

NARRATIVE: CASE EVENT DATE: 20251101
